FAERS Safety Report 5019763-X (Version None)
Quarter: 2006Q2

REPORT INFORMATION
  Report Type: 
  Country: None (occurrence: None)
  Receive Date: 20060607
  Receipt Date: 20060528
  Transmission Date: 20061013
  Serious: Yes (Hospitalization, Other)
  Sender: FDA-Public Use
  Company Number: PHEH2006US06991

PATIENT
  Age: 57 Year
  Sex: Female

DRUGS (1)
  1. FEMARA [Suspect]
     Indication: ENDOMETRIAL CANCER STAGE I
     Dosage: 2.5 MG, QD
     Route: 048
     Dates: start: 20050101

REACTIONS (4)
  - ARTHRALGIA [None]
  - ARTHRITIS [None]
  - HIP ARTHROPLASTY [None]
  - OSTEONECROSIS [None]
